FAERS Safety Report 16128361 (Version 2)
Quarter: 2019Q2

REPORT INFORMATION
  Report Type: Report from Study
  Country: None (occurrence: CL)
  Receive Date: 20190328
  Receipt Date: 20190422
  Transmission Date: 20190711
  Serious: Yes (Other)
  Sender: FDA-Public Use
  Company Number: CL-ABBVIE-19K-034-2718329-00

PATIENT
  Sex: Female
  Weight: 72 kg

DRUGS (2)
  1. HUMIRA [Suspect]
     Active Substance: ADALIMUMAB
     Route: 058
     Dates: start: 20190407
  2. HUMIRA [Suspect]
     Active Substance: ADALIMUMAB
     Indication: RHEUMATOID ARTHRITIS
     Route: 058
     Dates: start: 20180927, end: 20190307

REACTIONS (8)
  - Burning sensation [Not Recovered/Not Resolved]
  - Nasopharyngitis [Unknown]
  - Synovial cyst [Recovered/Resolved]
  - Dyspepsia [Recovered/Resolved]
  - Lipoma [Not Recovered/Not Resolved]
  - Immunodeficiency [Unknown]
  - Urinary tract infection [Recovering/Resolving]
  - Pain [Not Recovered/Not Resolved]

NARRATIVE: CASE EVENT DATE: 201811
